FAERS Safety Report 6433925-6 (Version None)
Quarter: 2009Q4

REPORT INFORMATION
  Report Type: 
  Country: None (occurrence: None)
  Receive Date: 20091110
  Receipt Date: 20091103
  Transmission Date: 20100525
  Serious: Yes (Hospitalization)
  Sender: FDA-Public Use
  Company Number: GB-BAYER-200938153GPV

PATIENT
  Age: 40 Year
  Sex: Male
  Weight: 68 kg

DRUGS (3)
  1. SORAFENIB [Suspect]
     Indication: THYROID CANCER METASTATIC
     Dosage: TOTAL DAILY DOSE: 800 MG
     Dates: start: 20071107
  2. SORAFENIB [Suspect]
     Dates: start: 20071213
  3. SORAFENIB [Suspect]
     Dates: start: 20080422

REACTIONS (2)
  - DYSPNOEA [None]
  - TACHYARRHYTHMIA [None]
